FAERS Safety Report 8165442-X (Version None)
Quarter: 2012Q1

REPORT INFORMATION
  Report Type: 
  Country: None (occurrence: None)
  Receive Date: 20120103
  Receipt Date: 20111114
  Transmission Date: 20120608
  Serious: No
  Sender: FDA-Public Use
  Company Number: AE-2011-002269

PATIENT
  Age: 44 Year
  Sex: Female
  Weight: 51.2565 kg

DRUGS (5)
  1. SINGULAIR [Concomitant]
  2. PEGASYS [Concomitant]
  3. RIBAVIRIN [Concomitant]
  4. INCIVEK [Suspect]
     Dosage: 2250 MG (750 MG, Q 7-9 HOURS), ORAL
     Route: 048
     Dates: start: 20111011
  5. ELMIRON [Concomitant]

REACTIONS (8)
  - CONFUSIONAL STATE [None]
  - HEADACHE [None]
  - PYREXIA [None]
  - FATIGUE [None]
  - ABDOMINAL DISCOMFORT [None]
  - INAPPROPRIATE SCHEDULE OF DRUG ADMINISTRATION [None]
  - PAIN [None]
  - INSOMNIA [None]
